FAERS Safety Report 23226883 (Version 1)
Quarter: 2023Q4

REPORT INFORMATION
  Report Type: Spontaneous
  Country: GB (occurrence: US)
  Receive Date: 20231124
  Receipt Date: 20231124
  Transmission Date: 20240109
  Serious: No
  Sender: FDA-Public Use
  Company Number: GB-AMGEN-USASP2023209241

PATIENT
  Age: 29 Year
  Sex: Male

DRUGS (1)
  1. XGEVA [Suspect]
     Active Substance: DENOSUMAB
     Indication: Bone giant cell tumour
     Dosage: UNK UNK, QMO
     Route: 065

REACTIONS (6)
  - Blood phosphorus increased [Recovering/Resolving]
  - Blood 1,25-dihydroxycholecalciferol increased [Unknown]
  - Hyperphosphataemia [Unknown]
  - Blood parathyroid hormone decreased [Unknown]
  - Blood creatinine increased [Unknown]
  - Blood 25-hydroxycholecalciferol increased [Unknown]
